FAERS Safety Report 5225105-7 (Version None)
Quarter: 2007Q1

REPORT INFORMATION
  Report Type: 
  Country: None (occurrence: None)
  Receive Date: 20070126
  Receipt Date: 20070123
  Transmission Date: 20070707
  Serious: Yes (Other)
  Sender: FDA-Public Use
  Company Number: 221498

PATIENT
  Sex: Female

DRUGS (3)
  1. HERCEPTIN(TRAZTUZUMAB) PWDR + SOLVENT, INFUSION SOLN, 440MG [Suspect]
     Indication: BREAST CANCER METASTATIC
     Dosage: 1 WEEK
     Dates: start: 20050601
  2. TAXOTERE [Concomitant]
  3. NAVELBINE [Concomitant]

REACTIONS (2)
  - COLORECTAL CANCER [None]
  - DISEASE PROGRESSION [None]
